FAERS Safety Report 12977312 (Version 1)
Quarter: 2016Q4

REPORT INFORMATION
  Report Type: Spontaneous
  Country: PK (occurrence: PK)
  Receive Date: 20161128
  Receipt Date: 20161128
  Transmission Date: 20170207
  Serious: Yes (Death)
  Sender: FDA-Public Use
  Company Number: PK-ROCHE-1860230

PATIENT
  Age: 46 Year
  Sex: Male

DRUGS (1)
  1. RISTOVA [Suspect]
     Active Substance: RITUXIMAB
     Indication: ANTINEUTROPHIL CYTOPLASMIC ANTIBODY POSITIVE
     Route: 042
     Dates: start: 20161112

REACTIONS (1)
  - White blood cell count decreased [Fatal]
